FAERS Safety Report 22306097 (Version 3)
Quarter: 2025Q1

REPORT INFORMATION
  Report Type: Spontaneous
  Country: CA (occurrence: CA)
  Receive Date: 20230511
  Receipt Date: 20250128
  Transmission Date: 20250409
  Serious: Yes (Hospitalization)
  Sender: INTERCEPT PHARMACEUTICALS
  Company Number: CA-ADVANZ PHARMA-202304002744

PATIENT
  Age: 62 Year
  Sex: Female

DRUGS (2)
  1. OCALIVA [Suspect]
     Active Substance: OBETICHOLIC ACID
     Indication: Primary biliary cholangitis
     Dosage: 5 MG, QD (OCALIVA)
     Route: 048
     Dates: start: 20230328
  2. URSODIOL [Concomitant]
     Active Substance: URSODIOL
     Dates: start: 2000

REACTIONS (6)
  - Cholelithiasis [Unknown]
  - Vomiting [Unknown]
  - Abdominal discomfort [Unknown]
  - Pruritus [Unknown]
  - Fatigue [Unknown]
  - Pyrexia [Unknown]
